FAERS Safety Report 15747763 (Version 1)
Quarter: 2018Q4

REPORT INFORMATION
  Report Type: Spontaneous
  Country: US (occurrence: US)
  Receive Date: 20181221
  Receipt Date: 20181221
  Transmission Date: 20190205
  Serious: Yes (Other)
  Sender: FDA-Public Use
  Company Number: US-JNJFOC-20181140569

PATIENT
  Sex: Female

DRUGS (8)
  1. PRINIVIL [Concomitant]
     Active Substance: LISINOPRIL
     Route: 048
  2. XALATAN [Concomitant]
     Active Substance: LATANOPROST
     Dosage: ONE DROP INTO THE LEFT EYE NIGHTLY
  3. MYRBETRIQ [Concomitant]
     Active Substance: MIRABEGRON
     Route: 048
     Dates: end: 20180130
  4. IMBRUVICA [Suspect]
     Active Substance: IBRUTINIB
     Indication: CHRONIC LYMPHOCYTIC LEUKAEMIA
     Route: 048
  5. TRIAMCINOLONE ACETONIDE. [Concomitant]
     Active Substance: TRIAMCINOLONE ACETONIDE
     Dosage: APPLY THIN FILM TO AFFECTED AREAS
     Dates: end: 20180130
  6. RESTORIL [Concomitant]
     Active Substance: TEMAZEPAM
     Dosage: 15 MG, 1-2 CAPSULES AS NEEDED
     Route: 048
  7. ALBUTEROL. [Concomitant]
     Active Substance: ALBUTEROL
     Indication: DYSPNOEA
     Dosage: EVERY SIX HOURS
  8. OXYBUTYNIN HYDROCHLORIDE [Concomitant]
     Active Substance: OXYBUTYNIN CHLORIDE
     Route: 048
     Dates: end: 20180130

REACTIONS (27)
  - Intervertebral disc degeneration [Unknown]
  - Hypertension [Unknown]
  - Melaena [Unknown]
  - Large intestine polyp [Unknown]
  - Seasonal allergy [Unknown]
  - Constipation [Unknown]
  - Insomnia [Unknown]
  - Asthenia [Unknown]
  - Blindness [Unknown]
  - Helicobacter infection [Unknown]
  - Carotid artery stenosis [Unknown]
  - Faeces discoloured [Unknown]
  - Anaemia [Unknown]
  - Depression [Unknown]
  - Neck pain [Unknown]
  - Urinary incontinence [Unknown]
  - Osteoporosis [Unknown]
  - Gastrooesophageal reflux disease [Unknown]
  - Pleural effusion [Unknown]
  - Chest pain [Unknown]
  - Amnesia [Unknown]
  - Oedema peripheral [Unknown]
  - Skin lesion [Unknown]
  - Atrial fibrillation [Unknown]
  - Pneumonia [Unknown]
  - Foot deformity [Unknown]
  - Dysphonia [Unknown]
